FAERS Safety Report 7241450-8 (Version None)
Quarter: 2011Q1

REPORT INFORMATION
  Report Type: 
  Country: None (occurrence: None)
  Receive Date: 20110124
  Receipt Date: 20110111
  Transmission Date: 20110831
  Serious: Yes (Hospitalization, Other)
  Sender: FDA-Public Use
  Company Number: DE-GENZYME-POMP-1001262

PATIENT
  Sex: Female
  Weight: 8.4 kg

DRUGS (4)
  1. MILRINONE [Concomitant]
     Indication: PRODUCT USED FOR UNKNOWN INDICATION
  2. MYOZYME [Suspect]
     Indication: GLYCOGEN STORAGE DISEASE TYPE II
     Dosage: 150 MG, 1X/W
     Route: 042
     Dates: start: 20100505
  3. DIGOXIN [Concomitant]
     Indication: PRODUCT USED FOR UNKNOWN INDICATION
  4. BETA BLOCKING AGENTS [Concomitant]
     Indication: PRODUCT USED FOR UNKNOWN INDICATION

REACTIONS (1)
  - INFUSION RELATED REACTION [None]
